FAERS Safety Report 11888236 (Version 2)
Quarter: 2016Q1

REPORT INFORMATION
  Report Type: Report from Study
  Country: US (occurrence: US)
  Receive Date: 20160105
  Receipt Date: 20160107
  Transmission Date: 20160526
  Serious: Yes (Hospitalization)
  Sender: FDA-Public Use
  Company Number: PHEH2015US027537

PATIENT
  Sex: Male
  Weight: 58.96 kg

DRUGS (1)
  1. GILENYA [Suspect]
     Active Substance: FINGOLIMOD HYDROCHLORIDE
     Indication: MULTIPLE SCLEROSIS
     Dosage: 0.5 MG, QD
     Route: 048
     Dates: start: 20151223

REACTIONS (5)
  - Seizure [Unknown]
  - Pyrexia [Unknown]
  - Bacterial infection [Unknown]
  - Pain [Unknown]
  - Movement disorder [Unknown]
